FAERS Safety Report 22751819 (Version 2)
Quarter: 2023Q4

REPORT INFORMATION
  Report Type: Spontaneous
  Country: CN (occurrence: CN)
  Receive Date: 20230726
  Receipt Date: 20231006
  Transmission Date: 20240110
  Serious: Yes (Other)
  Sender: FDA-Public Use
  Company Number: CN-BAYER-2023A105322

PATIENT
  Age: 42 Year
  Sex: Female
  Weight: 50 kg

DRUGS (2)
  1. ULTRAVIST [Suspect]
     Active Substance: IOPROMIDE
     Indication: Computerised tomogram abdomen
     Dosage: 31.170 G, ONCE
     Route: 042
     Dates: start: 20230710, end: 20230710
  2. ULTRAVIST [Suspect]
     Active Substance: IOPROMIDE
     Indication: Hepatic mass

REACTIONS (2)
  - Rash pruritic [Recovered/Resolved]
  - Laryngeal discomfort [Recovering/Resolving]

NARRATIVE: CASE EVENT DATE: 20230710
